FAERS Safety Report 23141871 (Version 3)
Quarter: 2024Q1

REPORT INFORMATION
  Report Type: Report from Study
  Country: TN (occurrence: TN)
  Receive Date: 20231103
  Receipt Date: 20240115
  Transmission Date: 20240410
  Serious: Yes (Hospitalization)
  Sender: FDA-Public Use
  Company Number: TN-ABBVIE-5477359

PATIENT
  Age: 38 Year
  Sex: Female

DRUGS (8)
  1. HUMIRA [Suspect]
     Active Substance: ADALIMUMAB
     Indication: Crohn^s disease
     Dosage: FORM STRENGTH: 40 MILLIGRAM
     Route: 058
     Dates: start: 201604, end: 20160910
  2. HUMIRA [Suspect]
     Active Substance: ADALIMUMAB
     Dosage: FORM STRENGTH: 40 MG
     Route: 058
     Dates: start: 201912, end: 20200910
  3. HUMIRA [Suspect]
     Active Substance: ADALIMUMAB
     Dosage: FORM STRENGTH: 40 MG
     Route: 058
     Dates: start: 20170129, end: 201706
  4. HUMIRA [Suspect]
     Active Substance: ADALIMUMAB
     Dosage: FORM STRENGTH: 40 MG
     Route: 058
     Dates: start: 20201006, end: 202012
  5. HUMIRA [Suspect]
     Active Substance: ADALIMUMAB
     Dosage: FORM STRENGTH: 40 MG
     Route: 058
     Dates: start: 20220808, end: 202210
  6. HUMIRA [Suspect]
     Active Substance: ADALIMUMAB
     Dosage: FORM STRENGTH: 40 MG
     Route: 058
     Dates: start: 202104, end: 202110
  7. HUMIRA [Suspect]
     Active Substance: ADALIMUMAB
     Dosage: FORM STRENGTH: 40 MG
     Route: 058
     Dates: start: 20170705, end: 201905
  8. HUMIRA [Suspect]
     Active Substance: ADALIMUMAB
     Dosage: FORM STRENGTH: 40 MG
     Route: 058
     Dates: start: 2023, end: 2023

REACTIONS (3)
  - Vocal cord polyp [Recovered/Resolved]
  - Uterine inflammation [Recovered/Resolved]
  - Vocal cord polyp [Recovered/Resolved]

NARRATIVE: CASE EVENT DATE: 20230601
